FAERS Safety Report 24172838 (Version 1)
Quarter: 2024Q3

REPORT INFORMATION
  Report Type: Spontaneous
  Country: US (occurrence: US)
  Receive Date: 20240805
  Receipt Date: 20240805
  Transmission Date: 20241017
  Serious: Yes (Other)
  Sender: GRAVITI PHARMACEUTICALS
  Company Number: US-GRAVITIPHARMA-GRA-2407-US-LIT-0292

PATIENT
  Age: 4 Year
  Sex: Female

DRUGS (4)
  1. FUROSEMIDE [Suspect]
     Active Substance: FUROSEMIDE
     Indication: Pneumonitis
     Route: 065
  2. FUROSEMIDE [Suspect]
     Active Substance: FUROSEMIDE
     Indication: Exposure via inhalation
  3. FUROSEMIDE [Suspect]
     Active Substance: FUROSEMIDE
     Indication: Metal poisoning
  4. FUROSEMIDE [Suspect]
     Active Substance: FUROSEMIDE
     Indication: Accidental exposure to product by child

REACTIONS (3)
  - Drug ineffective [Unknown]
  - Pyrexia [None]
  - Leukocytosis [None]
